FAERS Safety Report 6057508-5 (Version None)
Quarter: 2009Q1

REPORT INFORMATION
  Report Type: 
  Country: None (occurrence: None)
  Receive Date: 20090126
  Receipt Date: 20090112
  Transmission Date: 20090719
  Serious: Yes (Hospitalization)
  Sender: FDA-Public Use
  Company Number: KV200900070

PATIENT
  Age: 55 Year
  Sex: Female
  Weight: 50.8 kg

DRUGS (10)
  1. ISOSORBIDE MONONITRATE [Suspect]
     Indication: MIGRAINE
     Dosage: 15 MG, QD, ORAL
     Route: 048
     Dates: start: 19980101
  2. AMITRIPTYLINE HYDROCHLORIDE [Concomitant]
  3. DILTIAZEM [Concomitant]
  4. AMLODIPINE [Concomitant]
  5. SIMVASTATIN [Concomitant]
  6. LISINOPRIL [Concomitant]
  7. CITALOPRAM HYDROBROMIDE [Concomitant]
  8. HYDROXYZINE HCL [Concomitant]
  9. ADVAIR DISKUS 100/50 [Concomitant]
  10. PRO-AIR (PROCATEROL HYDROCHLORIDE) [Concomitant]

REACTIONS (4)
  - CHEST PAIN [None]
  - DIZZINESS [None]
  - HYPOTENSION [None]
  - VERTIGO [None]
